FAERS Safety Report 12578014 (Version 1)
Quarter: 2016Q3

REPORT INFORMATION
  Report Type: Spontaneous
  Country: US (occurrence: None)
  Receive Date: 20160720
  Receipt Date: 20160720
  Transmission Date: 20161109
  Serious: Yes (Disabling)
  Sender: FDA-Public Use
  Company Number: None

PATIENT
  Age: 65 Year
  Sex: Female
  Weight: 53.52 kg

DRUGS (4)
  1. DYMISTA [Concomitant]
     Active Substance: AZELASTINE HYDROCHLORIDE\FLUTICASONE PROPIONATE
  2. GADOBENATE DIMEGLUMINE [Suspect]
     Active Substance: GADOBENATE DIMEGLUMINE
     Indication: NUCLEAR MAGNETIC RESONANCE IMAGING BRAIN
     Dosage: TWICE DURING MRI/M INTO A VEIN
     Route: 042
     Dates: start: 20150217
  3. TORADOL [Concomitant]
     Active Substance: KETOROLAC TROMETHAMINE
  4. VIT. C CHLORELLA [Concomitant]

REACTIONS (9)
  - Arthralgia [None]
  - Anxiety [None]
  - Pruritus [None]
  - Muscular weakness [None]
  - Formication [None]
  - Depressed level of consciousness [None]
  - Muscle twitching [None]
  - Dysarthria [None]
  - Fatigue [None]

NARRATIVE: CASE EVENT DATE: 20160607
